FAERS Safety Report 5677239-0 (Version None)
Quarter: 2008Q1

REPORT INFORMATION
  Report Type: 
  Country: None (occurrence: None)
  Receive Date: 20080324
  Receipt Date: 20080314
  Transmission Date: 20080703
  Serious: Yes (Hospitalization)
  Sender: FDA-Public Use
  Company Number: US-ABBOTT-08P-163-0442524-00

PATIENT
  Sex: Male
  Weight: 120.31 kg

DRUGS (3)
  1. HUMIRA [Suspect]
     Indication: SPONDYLOARTHROPATHY
     Route: 058
     Dates: start: 20060301
  2. LISINOPRIL [Concomitant]
     Indication: CARDIAC DISORDER
     Route: 048
  3. ACETAMINOPHEN W/ CODEINE [Concomitant]
     Indication: PAIN
     Route: 048

REACTIONS (4)
  - ARTHROPATHY [None]
  - DENTAL CARIES [None]
  - TOOTH DISORDER [None]
  - TOOTH LOSS [None]
